FAERS Safety Report 5379551-1 (Version None)
Quarter: 2007Q3

REPORT INFORMATION
  Report Type: 
  Country: None (occurrence: None)
  Receive Date: 20070703
  Receipt Date: 20070621
  Transmission Date: 20080115
  Serious: Yes (Hospitalization)
  Sender: FDA-Public Use
  Company Number: 2007BI011725

PATIENT
  Age: 58 Year
  Sex: Male

DRUGS (1)
  1. AVONEX [Suspect]
     Indication: MULTIPLE SCLEROSIS
     Dosage: 30 UG; QW; IM
     Route: 030
     Dates: start: 20060301, end: 20070501

REACTIONS (3)
  - CERVICAL SPINAL STENOSIS [None]
  - INTERVERTEBRAL DISC DEGENERATION [None]
  - PROGRESSIVE RELAPSING MULTIPLE SCLEROSIS [None]
